FAERS Safety Report 11587412 (Version 1)
Quarter: 2015Q4

REPORT INFORMATION
  Report Type: Report from Study
  Country: US (occurrence: US)
  Receive Date: 20151001
  Receipt Date: 20151001
  Transmission Date: 20160304
  Serious: Yes (Hospitalization, Disabling, Other)
  Sender: FDA-Public Use
  Company Number: US-BAXALTA-2015BLT001907

PATIENT
  Sex: Female

DRUGS (1)
  1. GAMMAGARD S/D [Suspect]
     Active Substance: HUMAN IMMUNOGLOBULIN G
     Indication: PRODUCT USED FOR UNKNOWN INDICATION
     Dosage: 50 G, 1X A MONTH
     Route: 042

REACTIONS (3)
  - Cerebrovascular accident [Recovered/Resolved]
  - Diabetic complication [Recovered/Resolved]
  - Migraine [Recovered/Resolved]
